FAERS Safety Report 9197249 (Version 1)
Quarter: 2013Q1

REPORT INFORMATION
  Report Type: Spontaneous
  Country: US (occurrence: None)
  Receive Date: 20120709
  Receipt Date: 20120709
  Transmission Date: 20140127
  Serious: No
  Sender: FDA-Public Use
  Company Number: 2012HGS-003568

PATIENT
  Age: 41 Year
  Sex: Female
  Weight: 83.01 kg

DRUGS (5)
  1. BENLYSTA [Suspect]
     Indication: SYSTEMIC LUPUS ERYTHEMATOSUS
     Dosage: 1 IN 28 D
     Route: 041
     Dates: start: 20120330
  2. PREDNISONE (PREDNISONE) (PREDNISONE) [Concomitant]
  3. CELLCEPT (MYCOPHENOLATE MOFETIL) (MYCOPHENLATE MOFETIL) [Concomitant]
  4. PROPANOLOL (PROPANOLOL) (PROPANOLOL) [Concomitant]
  5. CLARITIN (LORATADINE) (LORATADINE) [Concomitant]

REACTIONS (6)
  - Decreased appetite [None]
  - Alopecia [None]
  - Abdominal pain [None]
  - Depression [None]
  - Anxiety [None]
  - Nausea [None]
